FAERS Safety Report 9168507 (Version 1)
Quarter: 2013Q1

REPORT INFORMATION
  Report Type: Spontaneous
  Country: US (occurrence: US)
  Receive Date: 20130318
  Receipt Date: 20130318
  Transmission Date: 20140127
  Serious: Yes (Hospitalization)
  Sender: FDA-Public Use
  Company Number: US-BAYER-2013-030941

PATIENT
  Age: 16 Year
  Sex: Female
  Weight: 64.1 kg

DRUGS (8)
  1. YAZ [Suspect]
     Indication: ACNE
  2. YASMIN [Suspect]
     Indication: CONTRACEPTION
  3. ACCUTANE [Concomitant]
     Dosage: 40 MG, QD
     Route: 048
     Dates: start: 200708
  4. PENICILLIN VK [Concomitant]
     Dosage: 500 MG, UNK
     Dates: start: 20070816
  5. DOXYCYCLIN [DOXYCYCLINE] [Concomitant]
     Dosage: 100 MG, UNK
     Dates: start: 20070816
  6. VITAMIIN C [Concomitant]
  7. NAPROXEN [Concomitant]
  8. IBUPROFENE [Concomitant]

REACTIONS (4)
  - Pulmonary embolism [Recovered/Resolved]
  - Vena cava thrombosis [Recovering/Resolving]
  - Pelvic venous thrombosis [Recovering/Resolving]
  - Deep vein thrombosis [Recovering/Resolving]
